FAERS Safety Report 8075196-3 (Version None)
Quarter: 2012Q1

REPORT INFORMATION
  Report Type: 
  Country: None (occurrence: None)
  Receive Date: 20120127
  Receipt Date: 20120114
  Transmission Date: 20120608
  Serious: Yes (Hospitalization, Other)
  Sender: FDA-Public Use
  Company Number: FR-PAR PHARMACEUTICAL, INC-2012SCPR003915

PATIENT

DRUGS (5)
  1. OLANZAPINE [Suspect]
     Dosage: 20 MG, / DAY
     Route: 065
  2. DIAZEPAM [Suspect]
     Indication: AGITATION
     Dosage: 30 MG, / DAY
     Route: 065
  3. OLANZAPINE [Suspect]
     Indication: MANIA
     Dosage: 10 MG, / DAY
     Route: 065
  4. DIVALPROEX SODIUM [Suspect]
     Indication: MANIA
     Dosage: 1000 MG, / DAY
     Route: 065
  5. DIVALPROEX SODIUM [Suspect]
     Dosage: 1500 MG, / DAY
     Route: 065

REACTIONS (2)
  - ENCEPHALOPATHY [None]
  - DRUG INTERACTION [None]
